FAERS Safety Report 8574486-5 (Version None)
Quarter: 2012Q3

REPORT INFORMATION
  Report Type: 
  Country: None (occurrence: None)
  Receive Date: 20120806
  Receipt Date: 20111207
  Transmission Date: 20120928
  Serious: No
  Sender: FDA-Public Use
  Company Number: US-ABBOTT-11P-163-0882053-00

PATIENT
  Sex: Female
  Weight: 57.658 kg

DRUGS (2)
  1. UNKNOWN THYROID MEDICATION [Concomitant]
     Indication: PRODUCT USED FOR UNKNOWN INDICATION
  2. DEPAKOTE ER [Suspect]
     Indication: CONVULSION
     Route: 048

REACTIONS (2)
  - HEADACHE [None]
  - DIZZINESS [None]
